FAERS Safety Report 5312341-4 (Version None)
Quarter: 2007Q2

REPORT INFORMATION
  Report Type: 
  Country: None (occurrence: None)
  Receive Date: 20070430
  Receipt Date: 20061122
  Transmission Date: 20071010
  Serious: No
  Sender: FDA-Public Use
  Company Number: 2006UW25909

PATIENT
  Age: 61 Year
  Sex: Female
  Weight: 72.6 kg

DRUGS (3)
  1. NEXIUM [Suspect]
     Indication: ULCER
     Route: 048
     Dates: start: 20061018
  2. NORTRIPTYLINE HCL [Concomitant]
  3. XANAX [Concomitant]

REACTIONS (4)
  - ANXIETY [None]
  - DEPRESSION [None]
  - FATIGUE [None]
  - IRRITABILITY [None]
